FAERS Safety Report 6962418-2 (Version None)
Quarter: 2010Q3

REPORT INFORMATION
  Report Type: 
  Country: None (occurrence: None)
  Receive Date: 20100823
  Receipt Date: 20100719
  Transmission Date: 20110219
  Serious: No
  Sender: FDA-Public Use
  Company Number: 015698

PATIENT
  Sex: Female
  Weight: 108.8633 kg

DRUGS (5)
  1. CIMZIA [Suspect]
     Indication: RHEUMATOID ARTHRITIS
     Dosage: (SUBCUTANEOUS)
     Route: 058
     Dates: start: 20100713
  2. METHOTREXATE [Concomitant]
  3. SULINDAC [Concomitant]
  4. ALPRAZOLAM [Concomitant]
  5. FOLIC ACID [Concomitant]

REACTIONS (1)
  - RASH PRURITIC [None]
